FAERS Safety Report 5313226-X (Version None)
Quarter: 2007Q1

REPORT INFORMATION
  Report Type: 
  Country: None (occurrence: None)
  Receive Date: 20070117
  Receipt Date: 20061213
  Transmission Date: 20070707
  Serious: Yes (Hospitalization)
  Sender: FDA-Public Use
  Company Number: US-JNJFOC-20061203664

PATIENT
  Age: 80 Year
  Sex: Female
  Weight: 55.3388 kg

DRUGS (4)
  1. RAZADYNE ER [Suspect]
     Indication: DEMENTIA ALZHEIMER'S TYPE
     Dosage: 24 MG, 1 IN 1 DAY, ORAL
     Route: 048
     Dates: start: 20060101
  2. NAMENDA (MEMANTINE) TABLET [Concomitant]
  3. FLOMAX (TAMSULOSIN HYDROCHLORIDE) TABLET [Concomitant]
  4. FOSAMAX [Concomitant]

REACTIONS (3)
  - SOMNOLENCE [None]
  - SPEECH DISORDER [None]
  - URINARY TRACT INFECTION [None]
